FAERS Safety Report 11788922 (Version 1)
Quarter: 2015Q4

REPORT INFORMATION
  Report Type: Spontaneous
  Country: IN (occurrence: IN)
  Receive Date: 20151201
  Receipt Date: 20151201
  Transmission Date: 20160305
  Serious: Yes (Other)
  Sender: FDA-Public Use
  Company Number: IN-WATSON-2015-18378

PATIENT
  Age: 56 Year
  Sex: Male

DRUGS (1)
  1. CHLOROQUINE. [Suspect]
     Active Substance: CHLOROQUINE
     Indication: SYSTEMIC LUPUS ERYTHEMATOSUS
     Dosage: 2.6 MG/KG, DAILY
     Route: 065

REACTIONS (2)
  - Optic atrophy [Not Recovered/Not Resolved]
  - Acquired pigmented retinopathy [Not Recovered/Not Resolved]
